FAERS Safety Report 15721848 (Version 5)
Quarter: 2019Q2

REPORT INFORMATION
  Report Type: Spontaneous
  Country: US (occurrence: US)
  Receive Date: 20181214
  Receipt Date: 20190624
  Transmission Date: 20190711
  Serious: Yes (Other)
  Sender: FDA-Public Use
  Company Number: US-PFIZER INC-2018512187

PATIENT
  Age: 59 Year
  Sex: Female
  Weight: 66 kg

DRUGS (1)
  1. LYRICA [Suspect]
     Active Substance: PREGABALIN
     Indication: NEURALGIA
     Dosage: 75 MG, TWICE A DAY
     Route: 048
     Dates: start: 2018

REACTIONS (4)
  - Neoplasm malignant [Unknown]
  - Daydreaming [Unknown]
  - Pain [Unknown]
  - Somnolence [Unknown]
